FAERS Safety Report 8380500-2 (Version None)
Quarter: 2012Q2

REPORT INFORMATION
  Report Type: 
  Country: None (occurrence: None)
  Receive Date: 20120523
  Receipt Date: 20120521
  Transmission Date: 20120825
  Serious: Yes (Other)
  Sender: FDA-Public Use
  Company Number: GB-GLAXOSMITHKLINE-B0802536A

PATIENT
  Age: 57 Year
  Sex: Male

DRUGS (7)
  1. CITALOPRAM HYDROBROMIDE [Concomitant]
     Indication: DEPRESSED MOOD
     Route: 048
     Dates: start: 20020131, end: 20120318
  2. ZOLPIDEM [Concomitant]
     Indication: POOR QUALITY SLEEP
     Route: 048
     Dates: start: 20120210
  3. ZOPICLONE [Concomitant]
     Indication: POOR QUALITY SLEEP
     Route: 048
     Dates: start: 20120131
  4. NITRAZEPAM [Concomitant]
     Indication: ANXIETY
     Route: 048
     Dates: start: 20120303
  5. PAROXETINE [Suspect]
     Route: 048
     Dates: start: 20120402, end: 20120410
  6. PAROXETINE [Suspect]
     Indication: DEPRESSION
     Route: 048
     Dates: start: 20120318, end: 20120401
  7. SUMATRIPTAN [Concomitant]
     Indication: MIGRAINE
     Route: 048
     Dates: start: 20120210

REACTIONS (5)
  - HYPERHIDROSIS [None]
  - SUICIDAL IDEATION [None]
  - NEGATIVE THOUGHTS [None]
  - WITHDRAWAL SYNDROME [None]
  - CONDITION AGGRAVATED [None]
